FAERS Safety Report 5634941-4 (Version None)
Quarter: 2008Q1

REPORT INFORMATION
  Report Type: 
  Country: None (occurrence: None)
  Receive Date: 20080222
  Receipt Date: 20080207
  Transmission Date: 20080703
  Serious: Yes (Hospitalization)
  Sender: FDA-Public Use
  Company Number: ES-BAYER-200813509GPV

PATIENT

DRUGS (2)
  1. FLUDARABINE [Suspect]
     Indication: EXTRANODAL MARGINAL ZONE B-CELL LYMPHOMA (MALT TYPE)
     Dosage: AS USED: 25 MG/M2
     Route: 042
  2. FLUDARABINE [Suspect]
     Dosage: AS USED: 40 MG/M2
     Route: 048

REACTIONS (1)
  - PYREXIA [None]
